FAERS Safety Report 12161001 (Version 2)
Quarter: 2016Q1

REPORT INFORMATION
  Report Type: Report from Study
  Country: DE (occurrence: DE)
  Receive Date: 20160308
  Receipt Date: 20160317
  Transmission Date: 20160526
  Serious: Yes (Death, Hospitalization, Other)
  Sender: FDA-Public Use
  Company Number: DE-ABBVIE-16P-062-1574195-00

PATIENT
  Age: 62 Year
  Sex: Male

DRUGS (2)
  1. DUODOPA [Suspect]
     Active Substance: CARBIDOPA\LEVODOPA
     Indication: PARKINSON^S DISEASE
     Dosage: MD 7.3 ML / CRD 3.2 ML/H / ED 1.0 ML
     Route: 050
     Dates: start: 20151118
  2. LEVOFLOXACIN. [Concomitant]
     Active Substance: LEVOFLOXACIN
     Indication: URINARY TRACT INFECTION
     Route: 048
     Dates: start: 20160225

REACTIONS (6)
  - Cardiac arrest [Unknown]
  - Dyspnoea [Unknown]
  - Resuscitation [Unknown]
  - Sepsis [Fatal]
  - Multiple organ dysfunction syndrome [Fatal]
  - Nausea [Unknown]

NARRATIVE: CASE EVENT DATE: 20160228
